FAERS Safety Report 17238101 (Version 1)
Quarter: 2020Q1

REPORT INFORMATION
  Report Type: Spontaneous
  Country: US (occurrence: US)
  Receive Date: 20200106
  Receipt Date: 20200106
  Transmission Date: 20200409
  Serious: Yes (Hospitalization)
  Sender: FDA-Public Use
  Company Number: US-PACIRA-201900271

PATIENT
  Age: 69 Year
  Sex: Male
  Weight: 76 kg

DRUGS (3)
  1. EXPAREL [Suspect]
     Active Substance: BUPIVACAINE
     Indication: INGUINAL HERNIA REPAIR
     Dates: start: 20190808, end: 20190808
  2. BUPIVACAINE. [Suspect]
     Active Substance: BUPIVACAINE
     Indication: PROCEDURAL PAIN
     Dates: start: 20190808, end: 20190808
  3. LIDOCAINE. [Concomitant]
     Active Substance: LIDOCAINE
     Indication: LOCAL ANAESTHESIA
     Dosage: 5CC
     Route: 042

REACTIONS (2)
  - Muscular weakness [Unknown]
  - Mobility decreased [Recovering/Resolving]

NARRATIVE: CASE EVENT DATE: 20190808
